FAERS Safety Report 5631215-2 (Version None)
Quarter: 2008Q1

REPORT INFORMATION
  Report Type: 
  Country: None (occurrence: None)
  Receive Date: 20080219
  Receipt Date: 20080207
  Transmission Date: 20080703
  Serious: Yes (Other)
  Sender: FDA-Public Use
  Company Number: US-PFIZER INC-2008014097

PATIENT
  Sex: Female

DRUGS (1)
  1. CHANTIX [Suspect]

REACTIONS (11)
  - ABDOMINAL DISTENSION [None]
  - DEPRESSION [None]
  - FATIGUE [None]
  - HEADACHE [None]
  - HYPERPHAGIA [None]
  - ILL-DEFINED DISORDER [None]
  - MOOD ALTERED [None]
  - PANIC ATTACK [None]
  - PARANOIA [None]
  - SOCIAL AVOIDANT BEHAVIOUR [None]
  - STARING [None]
